FAERS Safety Report 18219729 (Version 1)
Quarter: 2020Q3

REPORT INFORMATION
  Report Type: Spontaneous
  Country: US (occurrence: US)
  Receive Date: 20200901
  Receipt Date: 20200901
  Transmission Date: 20201103
  Serious: Yes (Hospitalization, Other)
  Sender: FDA-Public Use
  Company Number: US-PURDUE PHARMA-USA-2020-0157892

PATIENT
  Sex: Female

DRUGS (3)
  1. OXYCONTIN [Suspect]
     Active Substance: OXYCODONE HYDROCHLORIDE
     Indication: DRUG ABUSE
     Dosage: 60 MG, UNK
     Route: 048
     Dates: start: 2000
  2. LORTAB [Suspect]
     Active Substance: ACETAMINOPHEN\HYDROCODONE BITARTRATE
     Dosage: 10 MG, TID
     Route: 048
     Dates: start: 2012
  3. LORTAB [Suspect]
     Active Substance: ACETAMINOPHEN\HYDROCODONE BITARTRATE
     Indication: ARTHRALGIA
     Dosage: 10 MG, PRN (3,4 TIMES A DAY TO MORE)
     Route: 048
     Dates: start: 2000

REACTIONS (7)
  - Drug dependence [Unknown]
  - Arthritis [Not Recovered/Not Resolved]
  - Drug abuse [Unknown]
  - Gastric disorder [Not Recovered/Not Resolved]
  - Fatigue [Unknown]
  - Acute kidney injury [Not Recovered/Not Resolved]
  - Depression [Unknown]

NARRATIVE: CASE EVENT DATE: 2000
